FAERS Safety Report 13369214 (Version 1)
Quarter: 2017Q1

REPORT INFORMATION
  Report Type: Report from Study
  Country: CA (occurrence: CA)
  Receive Date: 20170324
  Receipt Date: 20170324
  Transmission Date: 20170429
  Serious: Yes (Hospitalization)
  Sender: FDA-Public Use
  Company Number: CA-JNJFOC-20170122642

PATIENT
  Age: 33 Year
  Sex: Male
  Weight: 114 kg

DRUGS (3)
  1. REMICADE [Suspect]
     Active Substance: INFLIXIMAB
     Indication: CROHN^S DISEASE
     Dosage: 52 WEEKS
     Route: 042
     Dates: start: 20170124
  2. REMICADE [Suspect]
     Active Substance: INFLIXIMAB
     Indication: CROHN^S DISEASE
     Route: 042
     Dates: start: 20150401
  3. REMICADE [Suspect]
     Active Substance: INFLIXIMAB
     Indication: CROHN^S DISEASE
     Route: 042
     Dates: start: 20160401

REACTIONS (9)
  - Product use issue [Unknown]
  - Abdominal distension [Unknown]
  - Diarrhoea [Recovering/Resolving]
  - Off label use [Unknown]
  - Flatulence [Unknown]
  - Intestinal resection [Recovered/Resolved]
  - Abscess [Recovered/Resolved]
  - Chills [Not Recovered/Not Resolved]
  - Pyrexia [Not Recovered/Not Resolved]

NARRATIVE: CASE EVENT DATE: 20150401
